FAERS Safety Report 9186734 (Version 1)
Quarter: 2013Q1

REPORT INFORMATION
  Report Type: Spontaneous
  Country: US (occurrence: US)
  Receive Date: 20130325
  Receipt Date: 20130325
  Transmission Date: 20140127
  Serious: No
  Sender: FDA-Public Use
  Company Number: US-PFIZER INC-2013095073

PATIENT
  Age: 72 Year
  Sex: Female
  Weight: 63.49 kg

DRUGS (4)
  1. GABAPENTIN [Suspect]
     Indication: SCIATICA
     Dosage: (600 MG TO 900 MG), 3X/WEEK
     Dates: start: 2010
  2. DIOVAN HCT [Concomitant]
     Indication: HYPERTENSION
     Dosage: 320/12.5MG, DAILY
     Dates: start: 2011
  3. AMLODIPINE [Concomitant]
     Indication: HYPERTENSION
     Dosage: 5 MG, DAILY
     Dates: start: 2011
  4. ATENOLOL [Concomitant]
     Indication: HYPERTENSION
     Dosage: 50 MG, DAILY
     Dates: start: 2011

REACTIONS (1)
  - Drug ineffective [Unknown]
